FAERS Safety Report 8760530 (Version 2)
Quarter: 2013Q3

REPORT INFORMATION
  Report Type: Spontaneous
  Country: US (occurrence: None)
  Receive Date: 20120822
  Receipt Date: 20130716
  Transmission Date: 20140515
  Serious: Yes (Hospitalization, Other)
  Sender: FDA-Public Use
  Company Number: 2012-002155

PATIENT
  Age: 79 Year
  Sex: Female

DRUGS (20)
  1. ACTONEL [Suspect]
     Route: 048
     Dates: start: 20090207, end: 201011
  2. ACTONEL [Suspect]
     Route: 048
     Dates: start: 20051119, end: 200609
  3. BONIVA [Suspect]
     Route: 048
     Dates: start: 20080107, end: 2008
  4. ALENDRONATE [Suspect]
     Dates: start: 20090204, end: 200902
  5. AMBIEN [Concomitant]
  6. DILTIAZEM [Concomitant]
  7. HYDROCHLOROTHIAZIDE W/LISINOPRIL (HYDROCHLOROTHIAZIDE, LISINOPRIL) [Concomitant]
  8. OMEPRAZOLE [Concomitant]
  9. ZYRTEC (CETIRIZINE HYDROCHLORIDE) [Concomitant]
  10. MOTRIN (IBUPROFEN) [Concomitant]
  11. NYSTATIN W/TRIAMCINOLONE (NYSTATIN, TRIAMCINOLONE ACETONIDE) [Concomitant]
  12. CALCIUM [Concomitant]
  13. GLUCOSAMINE COMPLEX (GLUCOSAMINE HYDROCHLORIDE, GLUCOSAMINE SULFATE) [Concomitant]
  14. ASPIRIN (E.C.) (ACETYLSALICYLIC ACID) [Concomitant]
  15. TYLENOL (PARACETAMOL) [Concomitant]
  16. CLARITIN (LORATADINE) [Concomitant]
  17. DIOVAN (VALSARTAN) [Concomitant]
  18. VIGAMOX (MOXIFLOXACIN HYDROCHLORIDE) [Concomitant]
  19. IRON (IRON) [Concomitant]
  20. VITAMIN C [Concomitant]

REACTIONS (7)
  - Fall [None]
  - Musculoskeletal disorder [None]
  - Femur fracture [None]
  - Stress fracture [None]
  - Muscular weakness [None]
  - Pain in extremity [None]
  - Fracture displacement [None]
